FAERS Safety Report 20022884 (Version 1)
Quarter: 2021Q4

REPORT INFORMATION
  Report Type: Spontaneous
  Country: US (occurrence: US)
  Receive Date: 20211102
  Receipt Date: 20211102
  Transmission Date: 20220303
  Serious: No
  Sender: FDA-Public Use
  Company Number: US-SA-SAC20211025000049

PATIENT
  Sex: Male

DRUGS (8)
  1. DUPIXENT [Suspect]
     Active Substance: DUPILUMAB
     Indication: Dermatitis atopic
     Route: 058
     Dates: start: 20210119
  2. ALBUTEROL [Concomitant]
     Active Substance: ALBUTEROL
  3. FLOVENT HFA [Concomitant]
     Active Substance: FLUTICASONE PROPIONATE
  4. FLUTICASONE [Concomitant]
     Active Substance: FLUTICASONE
  5. HYDROXYZINE HYDROCHLORIDE [Concomitant]
     Active Substance: HYDROXYZINE HYDROCHLORIDE
  6. MUPIROCIN [Concomitant]
     Active Substance: MUPIROCIN
  7. PAZEO [Concomitant]
     Active Substance: OLOPATADINE HYDROCHLORIDE
  8. ELECARE JR [Concomitant]

REACTIONS (1)
  - Rash macular [Unknown]
